FAERS Safety Report 8293876-1 (Version None)
Quarter: 2012Q2

REPORT INFORMATION
  Report Type: 
  Country: None (occurrence: None)
  Receive Date: 20120418
  Receipt Date: 20120412
  Transmission Date: 20120825
  Serious: No
  Sender: FDA-Public Use
  Company Number: US-PFIZER INC-2012068074

PATIENT
  Age: 46 Year
  Sex: Female

DRUGS (4)
  1. DOXYCYCLINE [Suspect]
     Dosage: UNK
  2. PENICILLIN G PROCAINE [Suspect]
     Dosage: UNK
  3. NEURONTIN [Suspect]
     Dosage: UNK
  4. DOXYCYCLINE HYCLATE [Suspect]

REACTIONS (1)
  - DRUG HYPERSENSITIVITY [None]
